FAERS Safety Report 14898865 (Version 3)
Quarter: 2018Q2

REPORT INFORMATION
  Report Type: Spontaneous
  Country: IT (occurrence: IT)
  Receive Date: 20180515
  Receipt Date: 20180525
  Transmission Date: 20180711
  Serious: Yes (Hospitalization)
  Sender: FDA-Public Use
  Company Number: IT-TEVA-2018-IT-892076

PATIENT
  Age: 58 Year
  Sex: Male

DRUGS (4)
  1. RIVOTRIL [Concomitant]
     Active Substance: CLONAZEPAM
     Route: 048
  2. CARDIOASPIRIN 100 MG COMPRESSE GASTRORESISTENTI [Concomitant]
     Active Substance: ASPIRIN
     Route: 030
  3. OLANZAPINE TEVA 10 MG ORODISPERSIBLE TABLETS [Suspect]
     Active Substance: OLANZAPINE
     Indication: SCHIZOPHRENIA
     Dosage: 30 MILLIGRAM DAILY;
     Route: 048
     Dates: start: 20180126, end: 20180131
  4. DEPAKIN CHRONO 500 MG COMPRESSE A RILASCIO PROLUNGATO [Concomitant]
     Active Substance: VALPROIC ACID
     Route: 048

REACTIONS (1)
  - Drug ineffective [Recovering/Resolving]

NARRATIVE: CASE EVENT DATE: 20180131
